FAERS Safety Report 7357379-0 (Version None)
Quarter: 2011Q1

REPORT INFORMATION
  Report Type: 
  Country: None (occurrence: None)
  Receive Date: 20110307
  Receipt Date: 20101202
  Transmission Date: 20110831
  Serious: No
  Sender: FDA-Public Use
  Company Number: AEUSA201000434

PATIENT
  Age: 64 Year
  Sex: Male

DRUGS (2)
  1. PROLASTIN-C [Suspect]
     Indication: ALPHA-1 ANTI-TRYPSIN DEFICIENCY
     Dosage: 60 MG/KG;QW;IV
     Route: 042
     Dates: start: 20100401, end: 20101202
  2. MULTI-VITAMINS [Concomitant]

REACTIONS (3)
  - SINUS DISORDER [None]
  - HEADACHE [None]
  - NO THERAPEUTIC RESPONSE [None]
